FAERS Safety Report 4726233-2 (Version None)
Quarter: 2005Q3

REPORT INFORMATION
  Report Type: 
  Country: None (occurrence: None)
  Receive Date: 20050727
  Receipt Date: 20050715
  Transmission Date: 20060218
  Serious: Yes (Other)
  Sender: FDA-Public Use
  Company Number: US-SANOFI-SYNTHELABO-A03200502162

PATIENT
  Sex: Female
  Weight: 83.7 kg

DRUGS (10)
  1. PLAVIX [Suspect]
     Indication: DRUG USE FOR UNKNOWN INDICATION
     Route: 048
     Dates: start: 19990101
  2. NV1FSG VS PLACEBO [Suspect]
     Indication: PERIPHERAL OCCLUSIVE DISEASE
     Dosage: UNK
     Route: 065
     Dates: start: 20020829, end: 20021011
  3. ASPIRIN [Concomitant]
     Dosage: UNK
     Route: 065
     Dates: start: 19990101
  4. LIPITOR [Concomitant]
     Dosage: UNK
     Route: 065
     Dates: start: 19990101
  5. LOPRESSOR [Concomitant]
     Dosage: UNK
     Route: 065
     Dates: start: 20010101
  6. LASIX [Concomitant]
     Dosage: UNK
     Route: 065
     Dates: start: 20020101
  7. FOLTX [Concomitant]
     Dosage: UNK
     Route: 065
  8. FISH OIL [Concomitant]
     Dosage: UNK
     Route: 065
  9. NITROGLYCERIN [Concomitant]
     Dosage: UNK
     Route: 065
  10. LISINOPRIL [Concomitant]
     Dosage: UNK
     Route: 065

REACTIONS (4)
  - ANEURYSM [None]
  - MACULAR DEGENERATION [None]
  - RETINAL HAEMORRHAGE [None]
  - RETINAL NEOVASCULARISATION [None]
